FAERS Safety Report 6291363-3 (Version None)
Quarter: 2009Q3

REPORT INFORMATION
  Report Type: 
  Country: None (occurrence: None)
  Receive Date: 20090728
  Receipt Date: 20090728
  Transmission Date: 20100115
  Serious: Yes (Hospitalization)
  Sender: FDA-Public Use
  Company Number: None

PATIENT
  Age: 22 Year
  Sex: Male
  Weight: 102.9665 kg

DRUGS (2)
  1. DEPAKOTE [Suspect]
     Indication: EPILEPSY
     Dosage: 500 MG, 250 MG 2X DAILY -AM,PM- PO
     Route: 048
     Dates: start: 20090101, end: 20090727
  2. LAMICTAL [Suspect]
     Indication: EPILEPSY
     Dosage: 150 MG 2X DAILY -AM, PM- PO
     Route: 048
     Dates: start: 20090201, end: 20090727

REACTIONS (9)
  - ABASIA [None]
  - BLINDNESS [None]
  - DIZZINESS [None]
  - DRUG TOXICITY [None]
  - FATIGUE [None]
  - HEADACHE [None]
  - NAUSEA [None]
  - PRODUCT SUBSTITUTION ISSUE [None]
  - VOMITING [None]
